FAERS Safety Report 8376628-3 (Version None)
Quarter: 2012Q2

REPORT INFORMATION
  Report Type: 
  Country: None (occurrence: None)
  Receive Date: 20120522
  Receipt Date: 20120517
  Transmission Date: 20120825
  Serious: No
  Sender: FDA-Public Use
  Company Number: US-PFIZER INC-2012121362

PATIENT
  Sex: Female
  Weight: 64 kg

DRUGS (8)
  1. PROGESTERONE [Suspect]
     Indication: OFF LABEL USE
     Dosage: UNK
     Dates: start: 19680101, end: 20120301
  2. PREMARIN [Suspect]
     Indication: HORMONE THERAPY
     Dosage: TWO TABLETS OF 1.25MG, DAILY
     Route: 048
  3. VITAMIN B-12 [Concomitant]
     Indication: SUPPLEMENTATION THERAPY
     Dosage: 150 MG, ONCE TO TWICE A MONTH
  4. PROGESTERONE [Suspect]
     Indication: HORMONE THERAPY
  5. DEPO-ESTRADIOL [Suspect]
     Indication: HORMONE THERAPY
     Dosage: 10MG/ML, ONCE EVERY TWO WEEK
     Route: 030
     Dates: end: 20120301
  6. DEPO-ESTRADIOL [Suspect]
     Indication: OFF LABEL USE
     Dosage: 10MG/ML, ONCE EVERY WEEK
     Route: 030
     Dates: start: 19680101
  7. DEPO-ESTRADIOL [Suspect]
     Dosage: UNK
     Route: 030
     Dates: end: 20120301
  8. PREMARIN [Suspect]
     Indication: OFF LABEL USE
     Dosage: 2.5 MG, DAILY
     Route: 048
     Dates: start: 19680101

REACTIONS (3)
  - BONE DISORDER [None]
  - DRUG INEFFECTIVE FOR UNAPPROVED INDICATION [None]
  - SKIN INDURATION [None]
